FAERS Safety Report 5782651-5 (Version None)
Quarter: 2008Q2

REPORT INFORMATION
  Report Type: 
  Country: None (occurrence: None)
  Receive Date: 20080624
  Receipt Date: 20080618
  Transmission Date: 20081010
  Serious: Yes (Other)
  Sender: FDA-Public Use
  Company Number: US-BAYER-200819868NA

PATIENT
  Sex: Female

DRUGS (2)
  1. MIRENA [Suspect]
     Indication: DRUG USE FOR UNKNOWN INDICATION
     Route: 015
  2. PENICILLIN [Concomitant]
     Indication: TOOTH IMPACTED

REACTIONS (6)
  - ABDOMINAL TENDERNESS [None]
  - GENITAL HAEMORRHAGE [None]
  - IUCD COMPLICATION [None]
  - POST PROCEDURAL HAEMORRHAGE [None]
  - PROCEDURAL PAIN [None]
  - TOOTH IMPACTED [None]
